FAERS Safety Report 24222931 (Version 1)
Quarter: 2024Q3

REPORT INFORMATION
  Report Type: Spontaneous
  Country: US (occurrence: None)
  Receive Date: 20240816
  Receipt Date: 20240816
  Transmission Date: 20241016
  Serious: Yes (Other)
  Sender: Public
  Company Number: None

PATIENT
  Age: 55 Year
  Sex: Female
  Weight: 82.8 kg

DRUGS (1)
  1. NAPROXEN SODIUM [Suspect]
     Active Substance: NAPROXEN\NAPROXEN SODIUM
     Indication: Headache
     Dosage: 1 CAPSULE ORAL
     Route: 048
     Dates: start: 20240816, end: 20240816

REACTIONS (2)
  - Rash pruritic [None]
  - Palpitations [None]

NARRATIVE: CASE EVENT DATE: 20240816
